FAERS Safety Report 9705897 (Version 2)
Quarter: 2013Q4

REPORT INFORMATION
  Report Type: Spontaneous
  Country: US (occurrence: US)
  Receive Date: 20131122
  Receipt Date: 20131122
  Transmission Date: 20140711
  Serious: No
  Sender: FDA-Public Use
  Company Number: US-GALDERMA-US13000709

PATIENT
  Age: 91 Year
  Sex: Male

DRUGS (8)
  1. CLOBEX (CLOBETASOL PROPIONATE) SPRAY, 0.05% [Suspect]
     Indication: PRURITUS
     Route: 061
     Dates: start: 201206
  2. CLOBEX (CLOBETASOL PROPIONATE) SPRAY, 0.05% [Suspect]
     Indication: SKIN PLAQUE
  3. LOSARTAN [Concomitant]
     Indication: HYPERTENSION
     Route: 048
  4. LIPITOR [Concomitant]
     Indication: HYPERCHOLESTEROLAEMIA
     Route: 048
  5. SYNTROID [Concomitant]
     Indication: THYROID OPERATION
     Route: 048
  6. FLUOCINONIDE 0.05% [Concomitant]
     Indication: PRURITUS
     Route: 061
  7. ASPIRIN [Concomitant]
     Route: 048
  8. VITAMINS [Concomitant]
     Route: 048

REACTIONS (2)
  - Drug ineffective for unapproved indication [Not Recovered/Not Resolved]
  - Off label use [Not Recovered/Not Resolved]
